FAERS Safety Report 20711861 (Version 5)
Quarter: 2022Q2

REPORT INFORMATION
  Report Type: Report from Study
  Country: GB (occurrence: GB)
  Receive Date: 20220414
  Receipt Date: 20220610
  Transmission Date: 20220721
  Serious: Yes (Life-Threatening, Hospitalization, Other)
  Sender: FDA-Public Use
  Company Number: GB-NOVOPROD-535167

PATIENT
  Age: 36 Year
  Sex: Female
  Weight: 94.2 kg

DRUGS (16)
  1. METFORMIN [Suspect]
     Active Substance: METFORMIN HYDROCHLORIDE
     Indication: Polycystic ovaries
     Dosage: 1 G, QD AND ALSO OTHER REGIMEN WITH CUMULATIVE DOSE OF 4164.95833 G
     Route: 048
     Dates: start: 20050301
  2. METFORMIN [Suspect]
     Active Substance: METFORMIN HYDROCHLORIDE
     Indication: Type 2 diabetes mellitus
     Dosage: 500 MG, QD
     Route: 048
     Dates: start: 20050301
  3. METFORMIN [Suspect]
     Active Substance: METFORMIN HYDROCHLORIDE
     Dosage: 1 G, QD
     Route: 048
     Dates: start: 20050301
  4. INSULIN HUMAN [Suspect]
     Active Substance: INSULIN HUMAN
     Indication: Type 2 diabetes mellitus
     Dosage: 290 U, QD
     Route: 058
     Dates: start: 20141125
  5. INSULIN HUMAN [Suspect]
     Active Substance: INSULIN HUMAN
     Dosage: DOSE:260 UNIT(S); 290 U, QD
     Route: 058
  6. NOVORAPID [Suspect]
     Active Substance: INSULIN ASPART
     Indication: Type 2 diabetes mellitus
     Route: 058
     Dates: start: 20161220
  7. APIDRA [Suspect]
     Active Substance: INSULIN GLULISINE
     Indication: Type 2 diabetes mellitus
     Dosage: 10 UNITS
     Route: 065
     Dates: start: 20161011, end: 2016
  8. APIDRA [Suspect]
     Active Substance: INSULIN GLULISINE
     Dosage: 25 INTERNATIONAL UNIT, QD
     Route: 065
     Dates: start: 20161011, end: 2016
  9. APIDRA [Suspect]
     Active Substance: INSULIN GLULISINE
     Dosage: 10 INTERNATIONAL UNIT, QD
     Route: 065
     Dates: start: 20161011
  10. FOLIC ACID [Concomitant]
     Active Substance: FOLIC ACID
     Indication: Product used for unknown indication
  11. SERTRALINE [Concomitant]
     Active Substance: SERTRALINE HYDROCHLORIDE
     Indication: Mental disorder
     Dates: start: 20140203
  12. LABETALOL [Concomitant]
     Active Substance: LABETALOL\LABETALOL HYDROCHLORIDE
     Indication: Hypertension
     Dosage: INFUSION
  13. METHYLDOPA [Concomitant]
     Active Substance: METHYLDOPA
     Indication: Hypertension
  14. ASPIRIN [Concomitant]
     Active Substance: ASPIRIN
     Indication: Prophylaxis
     Dates: start: 201610
  15. DALTEPARIN [Concomitant]
     Active Substance: DALTEPARIN
     Indication: Prophylaxis
     Dates: start: 201703
  16. FERROUS SULFATE [Concomitant]
     Active Substance: FERROUS SULFATE
     Indication: Anaemia
     Dates: start: 20170314

REACTIONS (6)
  - Diabetic ketoacidosis [Recovered/Resolved]
  - Acute kidney injury [Unknown]
  - Dehydration [Unknown]
  - Hypertension [Unknown]
  - Exposure during pregnancy [Recovered/Resolved]
  - Off label use [Unknown]

NARRATIVE: CASE EVENT DATE: 20160726
